FAERS Safety Report 8476043-8 (Version None)
Quarter: 2012Q2

REPORT INFORMATION
  Report Type: 
  Country: None (occurrence: None)
  Receive Date: 20120628
  Receipt Date: 20120620
  Transmission Date: 20120825
  Serious: Yes (Hospitalization, Disabling)
  Sender: FDA-Public Use
  Company Number: DE-ROCHE-1080888

PATIENT
  Sex: Male

DRUGS (9)
  1. PREDNISOLONE [Concomitant]
  2. METFORMIN HCL [Concomitant]
  3. TORSEMIDE [Concomitant]
  4. ALLOPURINOL [Concomitant]
  5. ASPIRIN [Concomitant]
  6. RAMIPRIL [Concomitant]
  7. PANTOPRAZOLE [Concomitant]
  8. MABTHERA [Suspect]
     Indication: SERONEGATIVE ARTHRITIS
     Dates: start: 20100720, end: 20110114
  9. LEFLUNOMIDE [Suspect]
     Indication: SERONEGATIVE ARTHRITIS
     Dates: start: 20091101

REACTIONS (1)
  - SKIN ULCER [None]
